FAERS Safety Report 7071107-8 (Version None)
Quarter: 2010Q4

REPORT INFORMATION
  Report Type: 
  Country: None (occurrence: None)
  Receive Date: 20101029
  Receipt Date: 20101018
  Transmission Date: 20110411
  Serious: Yes (Other)
  Sender: FDA-Public Use
  Company Number: US-PFIZER INC-2010112004

PATIENT
  Sex: Female
  Weight: 70.7 kg

DRUGS (8)
  1. LYRICA [Suspect]
     Indication: FIBROMYALGIA
     Dosage: 75 MG, 1X/DAY
     Route: 048
  2. LYRICA [Suspect]
     Indication: PAIN
  3. DEXTROAMPHETAMINE [Concomitant]
     Indication: ATTENTION DEFICIT/HYPERACTIVITY DISORDER
     Dosage: UNK
  4. NEURONTIN [Concomitant]
     Dosage: UNK
  5. NORCO [Concomitant]
     Dosage: UNK
  6. SOMA [Concomitant]
     Dosage: UNK
  7. ELAVIL [Concomitant]
     Dosage: UNK
  8. LOVASTATIN [Concomitant]
     Dosage: UNK

REACTIONS (8)
  - ARTHRALGIA [None]
  - DEPRESSION [None]
  - DRUG INEFFECTIVE [None]
  - NECK PAIN [None]
  - PAIN IN EXTREMITY [None]
  - STRESS [None]
  - VISION BLURRED [None]
  - WEIGHT INCREASED [None]
